FAERS Safety Report 9879953 (Version 1)
Quarter: 2014Q1

REPORT INFORMATION
  Report Type: Spontaneous
  Country: IT (occurrence: IT)
  Receive Date: 20140207
  Receipt Date: 20140207
  Transmission Date: 20141002
  Serious: Yes (Life-Threatening, Hospitalization)
  Sender: FDA-Public Use
  Company Number: IT-PFIZER INC-2014032160

PATIENT
  Age: 72 Year
  Sex: Male

DRUGS (8)
  1. CELECOXIB [Suspect]
     Indication: BACK PAIN
     Dosage: UNK
  2. DICLOFENAC [Interacting]
     Indication: BACK PAIN
     Dosage: UNK
  3. KETOPROFEN [Interacting]
     Indication: BACK PAIN
     Dosage: UNK
  4. PREDNISONE [Interacting]
     Indication: BACK PAIN
     Dosage: UNK
  5. ETORICOXIB [Interacting]
     Indication: BACK PAIN
     Dosage: UNK
  6. HYOSCINE BUTYLBROMIDE [Interacting]
     Indication: ABDOMINAL PAIN
     Dosage: UNK
  7. PAPAVERINE HYDROCHLORIDE [Suspect]
     Indication: ABDOMINAL PAIN
     Dosage: UNK
  8. BELLADONNA ALKALOIDS [Suspect]
     Indication: ABDOMINAL PAIN
     Dosage: UNK

REACTIONS (4)
  - Drug interaction [Recovering/Resolving]
  - Drug prescribing error [Unknown]
  - Self-medication [Unknown]
  - Drug ineffective [Unknown]
